FAERS Safety Report 24269967 (Version 1)
Quarter: 2024Q3

REPORT INFORMATION
  Report Type: Spontaneous
  Country: JP (occurrence: JP)
  Receive Date: 20240830
  Receipt Date: 20240830
  Transmission Date: 20241016
  Serious: Yes (Other)
  Sender: FRESENIUS KABI
  Company Number: JP-FreseniusKabi-FK202413126

PATIENT
  Age: 5 Decade
  Sex: Female
  Weight: 46 kg

DRUGS (1)
  1. PROPOFOL [Suspect]
     Active Substance: PROPOFOL
     Indication: Sedation
     Dosage: FORM OF ADMIN/ROUTE OF ADMIN: INTRAVENOUS INJECTION
     Dates: start: 202209, end: 202209

REACTIONS (2)
  - Anaphylactic reaction [Recovered/Resolved]
  - Blood pressure decreased [Recovered/Resolved]

NARRATIVE: CASE EVENT DATE: 20220901
